FAERS Safety Report 19913988 (Version 2)
Quarter: 2021Q4

REPORT INFORMATION
  Report Type: Report from Study
  Country: US (occurrence: US)
  Receive Date: 20211004
  Receipt Date: 20211207
  Transmission Date: 20220303
  Serious: Yes (Hospitalization)
  Sender: FDA-Public Use
  Company Number: US-AMGEN-USASP2021150348

PATIENT
  Age: 73 Year
  Sex: Female

DRUGS (4)
  1. REPATHA [Suspect]
     Active Substance: EVOLOCUMAB
     Indication: Hypercholesterolaemia
     Dosage: 140 MILLIGRAM, Q2WK
     Route: 065
     Dates: start: 2019
  2. REPATHA [Suspect]
     Active Substance: EVOLOCUMAB
     Dosage: 140 MILLIGRAM, Q2WK
     Route: 065
     Dates: start: 2020
  3. COVID-19 VACCINE NOS [Concomitant]
     Active Substance: COVID-19 VACCINE NOS
     Dosage: UNK
     Dates: start: 202105
  4. COVID-19 VACCINE NOS [Concomitant]
     Active Substance: COVID-19 VACCINE NOS
     Dosage: UNK
     Dates: start: 202106

REACTIONS (7)
  - Dehydration [Unknown]
  - Renal disorder [Unknown]
  - Blood cholesterol increased [Unknown]
  - Pain in extremity [Not Recovered/Not Resolved]
  - Illness [Unknown]
  - Myalgia [Not Recovered/Not Resolved]
  - Arthralgia [Not Recovered/Not Resolved]

NARRATIVE: CASE EVENT DATE: 20210101
